FAERS Safety Report 5146751-5 (Version None)
Quarter: 2006Q4

REPORT INFORMATION
  Report Type: 
  Country: None (occurrence: None)
  Receive Date: 20061102
  Receipt Date: 20061026
  Transmission Date: 20070319
  Serious: Yes (Hospitalization)
  Sender: FDA-Public Use
  Company Number: 163-20785-06101337

PATIENT
  Sex: Male

DRUGS (10)
  1. THALOMID [Suspect]
     Indication: MULTIPLE MYELOMA
     Dosage: 100 MG, DAILY, ORAL; SEE IMAGE
     Route: 048
     Dates: start: 20060401, end: 20060101
  2. THALOMID [Suspect]
     Indication: MULTIPLE MYELOMA
     Dosage: 100 MG, DAILY, ORAL; SEE IMAGE
     Route: 048
     Dates: start: 20060101
  3. ALLOPURINOL [Concomitant]
  4. DEXAMETHASONE TAB [Concomitant]
  5. ESOMEPRAZOLE (ESOMEPRAZOLE) [Concomitant]
  6. FOLIC ACID [Concomitant]
  7. HYDROMORPHONE HCL [Concomitant]
  8. INSULIN (INSULIN) [Concomitant]
  9. METOPROLOL TARTRATE [Concomitant]
  10. RAMIPRIL [Concomitant]

REACTIONS (1)
  - SPINAL CORD COMPRESSION [None]
